FAERS Safety Report 7986828-X (Version None)
Quarter: 2011Q4

REPORT INFORMATION
  Report Type: 
  Country: None (occurrence: None)
  Receive Date: 20111216
  Receipt Date: 20110901
  Transmission Date: 20120403
  Serious: No
  Sender: FDA-Public Use
  Company Number: US-BRISTOL-MYERS SQUIBB COMPANY-16023798

PATIENT
  Age: 17 Year
  Sex: Male

DRUGS (2)
  1. LITHIUM CARBONATE [Suspect]
  2. ABILIFY [Suspect]
     Dosage: INITIALLY GIVEN DOSE:30MG,THEN REDUCED TO 25MG

REACTIONS (2)
  - FEELING HOT [None]
  - MUSCLE TIGHTNESS [None]
